FAERS Safety Report 11990635 (Version 1)
Quarter: 2016Q1

REPORT INFORMATION
  Report Type: Spontaneous
  Country: US (occurrence: US)
  Receive Date: 20160202
  Receipt Date: 20160202
  Transmission Date: 20160526
  Serious: Yes (Other)
  Sender: FDA-Public Use
  Company Number: US-BAYER-2016-019241

PATIENT
  Age: 86 Year
  Sex: Male
  Weight: 90.7 kg

DRUGS (3)
  1. RAMIPRIL. [Concomitant]
     Active Substance: RAMIPRIL
  2. CORICIDIN HBP COUGH AND COLD [Suspect]
     Active Substance: CHLORPHENIRAMINE MALEATE\DEXTROMETHORPHAN HYDROBROMIDE
     Indication: NASOPHARYNGITIS
     Dosage: 1 DF, QID
     Route: 048
     Dates: start: 2013
  3. CARVEDILOL. [Concomitant]
     Active Substance: CARVEDILOL

REACTIONS (3)
  - Product use issue [None]
  - Product use issue [Unknown]
  - Cardiac pacemaker insertion [None]

NARRATIVE: CASE EVENT DATE: 201312
